FAERS Safety Report 7732688-1 (Version None)
Quarter: 2011Q3

REPORT INFORMATION
  Report Type: 
  Country: None (occurrence: None)
  Receive Date: 20110907
  Receipt Date: 20110829
  Transmission Date: 20111222
  Serious: Yes (Hospitalization)
  Sender: FDA-Public Use
  Company Number: US-BIOGENIDEC-2009BI005462

PATIENT
  Age: 45 Year
  Sex: Female

DRUGS (2)
  1. AVONEX [Suspect]
     Indication: MULTIPLE SCLEROSIS
     Route: 030
     Dates: start: 20000501, end: 20030801
  2. AVONEX [Suspect]
     Route: 030
     Dates: start: 20030801

REACTIONS (5)
  - APHASIA [None]
  - MULTIPLE SCLEROSIS [None]
  - DROOLING [None]
  - DYSARTHRIA [None]
  - BRADYPHRENIA [None]
